FAERS Safety Report 14189182 (Version 1)
Quarter: 2017Q4

REPORT INFORMATION
  Report Type: Report from Study
  Country: None (occurrence: BR)
  Receive Date: 20171115
  Receipt Date: 20171115
  Transmission Date: 20180321
  Serious: Yes (Disabling, Other)
  Sender: FDA-Public Use
  Company Number: BR-ABBVIE-17K-020-2159836-00

PATIENT
  Age: 54 Year
  Sex: Female
  Weight: 94 kg

DRUGS (2)
  1. HUMIRA [Suspect]
     Active Substance: ADALIMUMAB
     Indication: PSORIATIC ARTHROPATHY
     Route: 058
     Dates: start: 20141106
  2. HUMIRA [Suspect]
     Active Substance: ADALIMUMAB
     Route: 058

REACTIONS (17)
  - Sensitivity to weather change [Recovering/Resolving]
  - Pain [Recovering/Resolving]
  - Pain in extremity [Recovering/Resolving]
  - Fibromyalgia [Recovering/Resolving]
  - Diabetes mellitus [Unknown]
  - Pain [Unknown]
  - Hypertension [Unknown]
  - Gait inability [Recovering/Resolving]
  - Abdominal pain upper [Recovering/Resolving]
  - Ligament sprain [Recovering/Resolving]
  - Cholelithiasis [Recovered/Resolved]
  - Endoscopy abnormal [Recovering/Resolving]
  - Pulmonary mass [Unknown]
  - Pain [Not Recovered/Not Resolved]
  - Arthritis [Not Recovered/Not Resolved]
  - Asthmatic crisis [Recovering/Resolving]
  - Inflammation [Recovering/Resolving]

NARRATIVE: CASE EVENT DATE: 2017
